FAERS Safety Report 8693167 (Version 2)
Quarter: 2012Q4

REPORT INFORMATION
  Report Type: Report from Study
  Country: GB (occurrence: GB)
  Receive Date: 20120730
  Receipt Date: 20121109
  Transmission Date: 20130627
  Serious: Yes (Death, Other)
  Sender: FDA-Public Use
  Company Number: GB-ROCHE-1092992

PATIENT
  Age: 79 Year
  Sex: Female
  Weight: 55 kg

DRUGS (3)
  1. RITUXIMAB [Suspect]
     Indication: RHEUMATOID ARTHRITIS
     Route: 065
     Dates: start: 20090708
  2. LEFLUNOMIDE [Concomitant]
  3. METHOTREXATE [Concomitant]

REACTIONS (7)
  - Death [Fatal]
  - Peripheral vascular disorder [Unknown]
  - Myocardial ischaemia [Unknown]
  - Cerebrovascular accident [Unknown]
  - Hypertension [Unknown]
  - Myocardial infarction [Fatal]
  - Hypercholesterolaemia [Unknown]
